FAERS Safety Report 18164826 (Version 2)
Quarter: 2020Q3

REPORT INFORMATION
  Report Type: Spontaneous
  Country: GB (occurrence: GB)
  Receive Date: 20200818
  Receipt Date: 20200929
  Transmission Date: 20201103
  Serious: Yes (Hospitalization)
  Sender: FDA-Public Use
  Company Number: GB-EMD SERONO-9181030

PATIENT
  Age: 81 Year
  Sex: Male

DRUGS (2)
  1. INLYTA [Suspect]
     Active Substance: AXITINIB
     Indication: RENAL CANCER METASTATIC
     Dates: start: 202002
  2. AVELUMAB [Suspect]
     Active Substance: AVELUMAB
     Indication: RENAL CANCER METASTATIC
     Dates: start: 202002

REACTIONS (3)
  - Respiration abnormal [Unknown]
  - Lower respiratory tract infection [Unknown]
  - Haemoglobin abnormal [Unknown]

NARRATIVE: CASE EVENT DATE: 2020
